FAERS Safety Report 4418234-9 (Version None)
Quarter: 2004Q3

REPORT INFORMATION
  Report Type: 
  Country: None (occurrence: None)
  Receive Date: 20040809
  Receipt Date: 20040113
  Transmission Date: 20050211
  Serious: No
  Sender: FDA-Public Use
  Company Number: US-GLAXOSMITHKLINE-A0492902A

PATIENT
  Age: 54 Year
  Sex: Female

DRUGS (2)
  1. PAXIL [Suspect]
     Indication: PANIC DISORDER
     Dosage: 25MG PER DAY
     Route: 048
     Dates: start: 20031001, end: 20040107
  2. KLONOPIN [Concomitant]

REACTIONS (22)
  - ALOPECIA [None]
  - AMNESIA [None]
  - ANOREXIA [None]
  - BONE PAIN [None]
  - BREAST MASS [None]
  - CHEST PAIN [None]
  - DIARRHOEA [None]
  - EAR PAIN [None]
  - GASTRITIS [None]
  - HAIR DISORDER [None]
  - HEADACHE [None]
  - HYPOTRICHOSIS [None]
  - INFLAMMATION [None]
  - INFLAMMATION LOCALISED [None]
  - INFLUENZA LIKE ILLNESS [None]
  - LYMPHADENOPATHY [None]
  - NASAL SINUS DRAINAGE [None]
  - NAUSEA [None]
  - PRODUCTIVE COUGH [None]
  - TREMOR [None]
  - VISUAL DISTURBANCE [None]
  - VOMITING [None]
